FAERS Safety Report 18275579 (Version 1)
Quarter: 2020Q3

REPORT INFORMATION
  Report Type: Spontaneous
  Country: CA (occurrence: CA)
  Receive Date: 20200917
  Receipt Date: 20200917
  Transmission Date: 20201103
  Serious: Yes (Hospitalization)
  Sender: FDA-Public Use
  Company Number: CA-AUROBINDO-AUR-APL-2020-047758

PATIENT
  Age: 52 Year
  Sex: Female

DRUGS (6)
  1. VANCOMYCIN HYDROCHLORIDE. [Suspect]
     Active Substance: VANCOMYCIN HYDROCHLORIDE
     Indication: PERIORBITAL CELLULITIS
     Dosage: UNK UNK, TWO TIMES A DAY
     Route: 047
  2. MOXIFLOXACIN. [Suspect]
     Active Substance: MOXIFLOXACIN
     Indication: PERIORBITAL CELLULITIS
     Dosage: 0.5 PERCENT, TWO TIMES A DAY
     Route: 047
  3. METRONIDAZOLE. [Concomitant]
     Active Substance: METRONIDAZOLE
     Indication: PERIORBITAL CELLULITIS
     Dosage: 500 MILLIGRAM, 3 TIMES A DAY
     Route: 042
  4. VANCOMYCIN HYDROCHLORIDE. [Suspect]
     Active Substance: VANCOMYCIN HYDROCHLORIDE
     Dosage: 1 GRAM, TWO TIMES A DAY
     Route: 042
  5. CIPROFLOXACIN. [Concomitant]
     Active Substance: CIPROFLOXACIN
     Indication: PERIORBITAL CELLULITIS
     Dosage: 400 MILLIGRAM, TWO TIMES A DAY
     Route: 042
  6. METHAZOLAMIDE. [Concomitant]
     Active Substance: METHAZOLAMIDE
     Indication: PERIORBITAL CELLULITIS
     Dosage: 50 MILLIGRAM, 3 TIMES A DAY
     Route: 048

REACTIONS (2)
  - Drug intolerance [Unknown]
  - Pyrexia [Unknown]
